FAERS Safety Report 21111288 (Version 2)
Quarter: 2022Q3

REPORT INFORMATION
  Report Type: Spontaneous
  Country: FR (occurrence: FR)
  Receive Date: 20220721
  Receipt Date: 20220728
  Transmission Date: 20221027
  Serious: Yes (Hospitalization, Other)
  Sender: FDA-Public Use
  Company Number: FR-PHARMALEX-2022000710

PATIENT
  Age: 25 Year
  Sex: Female

DRUGS (12)
  1. TRAMADOL [Suspect]
     Active Substance: TRAMADOL
     Indication: Intervertebral disc protrusion
     Dosage: 200 MILLIGRAM, QD (1/DAY)
     Route: 065
     Dates: start: 2018
  2. TRAMADOL [Suspect]
     Active Substance: TRAMADOL
     Dosage: 500 MILLIGRAM, QD (1/DAY)
     Route: 065
     Dates: end: 2018
  3. TRAMADOL [Suspect]
     Active Substance: TRAMADOL
     Dosage: 2000 MILLIGRAM, QD
     Route: 065
     Dates: start: 2019
  4. TRAMADOL [Suspect]
     Active Substance: TRAMADOL
     Dosage: UP TO 1000 MG DAILY
     Route: 048
     Dates: start: 2019
  5. TRAMADOL HYDROCHLORIDE [Suspect]
     Active Substance: TRAMADOL HYDROCHLORIDE
     Indication: Intervertebral disc protrusion
     Dosage: 1000 MILLIGRAM, QD (1/DAY)
     Route: 065
     Dates: start: 2019
  6. TRAMADOL HYDROCHLORIDE [Suspect]
     Active Substance: TRAMADOL HYDROCHLORIDE
     Dosage: 2000 MILLIGRAM, QD (1/DAY)
     Route: 065
     Dates: start: 2019
  7. DIAZEPAM [Suspect]
     Active Substance: DIAZEPAM
     Indication: Anxiety
     Dosage: 10 MILLIGRAM, QD (MAXIMUM TWO TABLETS PER DAY)
     Route: 065
     Dates: start: 2020
  8. DIAZEPAM [Suspect]
     Active Substance: DIAZEPAM
     Indication: Insomnia
     Dosage: UNSPECIFIED AMOUNT ADMINISTERED FOR POISONING
     Route: 065
     Dates: start: 2020
  9. PAROXETINE [Suspect]
     Active Substance: PAROXETINE
     Indication: Major depression
     Dosage: 20 MILLIGRAM, QD
     Route: 065
     Dates: start: 2020
  10. PAROXETINE [Suspect]
     Active Substance: PAROXETINE
     Dosage: UNSPECIFIED AMOUNT ADMINISTERED FOR POISONING
     Route: 065
     Dates: start: 2020
  11. LAMOTRIGINE [Suspect]
     Active Substance: LAMOTRIGINE
     Indication: Generalised tonic-clonic seizure
     Dosage: 100 MILLIGRAM, QD
     Route: 065
     Dates: start: 2019
  12. LAMOTRIGINE [Concomitant]
     Active Substance: LAMOTRIGINE
     Indication: Generalised tonic-clonic seizure
     Dosage: UNK
     Route: 065

REACTIONS (14)
  - Suicidal ideation [Unknown]
  - Major depression [Unknown]
  - Suicide attempt [Unknown]
  - Toxicity to various agents [Unknown]
  - Impatience [Recovered/Resolved]
  - Chills [Recovered/Resolved]
  - Generalised tonic-clonic seizure [Unknown]
  - Anxiety [Recovered/Resolved]
  - Diarrhoea [Recovered/Resolved]
  - Drug dependence [Unknown]
  - Drug withdrawal syndrome [Recovered/Resolved]
  - Intentional overdose [Unknown]
  - Intentional product misuse [Unknown]
  - Overdose [Unknown]

NARRATIVE: CASE EVENT DATE: 20180101
